FAERS Safety Report 6569047-3 (Version None)
Quarter: 2010Q1

REPORT INFORMATION
  Report Type: 
  Country: None (occurrence: None)
  Receive Date: 20100203
  Receipt Date: 20100125
  Transmission Date: 20100710
  Serious: Yes (Other)
  Sender: FDA-Public Use
  Company Number: US-NOVOPROD-303631

PATIENT
  Age: 5 Year
  Sex: Female
  Weight: 13.7 kg

DRUGS (2)
  1. NORDITROPIN NORDIFLEX [Suspect]
     Dosage: 0.7 MG, QD
     Route: 058
     Dates: end: 20091201
  2. NORDITROPIN NORDIFLEX [Suspect]
     Dosage: 0.7 MG, QD
     Route: 058
     Dates: start: 20100101

REACTIONS (1)
  - BONE CYST [None]
